FAERS Safety Report 9073054 (Version 1)
Quarter: 2013Q1

REPORT INFORMATION
  Report Type: Report from Study
  Country: US (occurrence: US)
  Receive Date: 20130128
  Receipt Date: 20130128
  Transmission Date: 20140127
  Serious: No
  Sender: FDA-Public Use
  Company Number: US-ABBOTT-12P-163-0917665-00

PATIENT
  Age: 49 Year
  Sex: Female

DRUGS (7)
  1. HUMIRA 40 MG/0.8 ML PEN [Suspect]
     Indication: PSORIASIS
     Dosage: 80 MG LOADING DOSE
     Dates: start: 20120316
  2. CLARINEX [Concomitant]
     Indication: HYPERSENSITIVITY
  3. SINGULAR [Concomitant]
     Indication: HYPERSENSITIVITY
     Dosage: AT BEDTIME
  4. ADVAIR [Concomitant]
     Indication: ASTHMA
     Dosage: IN THE MORNING
  5. LEVOXYL [Concomitant]
     Indication: THYROID DISORDER
  6. VITAMIN PACK [Concomitant]
     Indication: WEIGHT DECREASED
  7. LEXAPRO [Concomitant]
     Indication: ANXIETY
     Dosage: AT NIGHT

REACTIONS (5)
  - Pharyngeal erythema [Not Recovered/Not Resolved]
  - Dry mouth [Unknown]
  - Oropharyngeal discomfort [Unknown]
  - Hypersensitivity [Unknown]
  - Diarrhoea [Recovered/Resolved]
